FAERS Safety Report 8353260-9 (Version None)
Quarter: 2012Q2

REPORT INFORMATION
  Report Type: 
  Country: None (occurrence: None)
  Receive Date: 20120511
  Receipt Date: 20120503
  Transmission Date: 20120825
  Serious: Yes (Other)
  Sender: FDA-Public Use
  Company Number: US-GENZYME-CERZ-1002495

PATIENT
  Sex: Female
  Weight: 98 kg

DRUGS (1)
  1. CEREZYME [Suspect]
     Indication: GAUCHER'S DISEASE
     Dosage: 49.0 U/KG, Q4W
     Route: 042
     Dates: start: 20060101

REACTIONS (2)
  - TIBIA FRACTURE [None]
  - FALL [None]
